FAERS Safety Report 5485005-4 (Version None)
Quarter: 2007Q4

REPORT INFORMATION
  Report Type: 
  Country: None (occurrence: None)
  Receive Date: 20071015
  Receipt Date: 20071005
  Transmission Date: 20080405
  Serious: Yes (Hospitalization)
  Sender: FDA-Public Use
  Company Number: PHEH2007US13246

PATIENT
  Age: 36 Year
  Sex: Male
  Weight: 99.773 kg

DRUGS (1)
  1. DIOVAN [Suspect]
     Indication: HYPERTENSION
     Dosage: UNK, UNK
     Dates: start: 20070101

REACTIONS (5)
  - CARDIAC ARREST [None]
  - CHEST PAIN [None]
  - DYSPNOEA [None]
  - MYOCARDIAL INFARCTION [None]
  - PAIN IN JAW [None]
